FAERS Safety Report 19865631 (Version 2)
Quarter: 2021Q4

REPORT INFORMATION
  Report Type: Other
  Country: US (occurrence: US)
  Receive Date: 20210922
  Receipt Date: 20211007
  Transmission Date: 20220303
  Serious: Yes (Hospitalization, Other)
  Sender: FDA-Public Use
  Company Number: US-ROCHE-2892670

PATIENT
  Sex: Male

DRUGS (6)
  1. ACTEMRA [Suspect]
     Active Substance: TOCILIZUMAB
     Indication: Cardiovascular disorder
     Route: 058
  2. ACTEMRA [Suspect]
     Active Substance: TOCILIZUMAB
  3. ACTEMRA [Suspect]
     Active Substance: TOCILIZUMAB
     Indication: Autoinflammatory disease
     Route: 058
  4. ACTEMRA [Suspect]
     Active Substance: TOCILIZUMAB
  5. ACTEMRA [Suspect]
     Active Substance: TOCILIZUMAB
     Indication: Budd-Chiari syndrome
  6. ACTEMRA [Suspect]
     Active Substance: TOCILIZUMAB

REACTIONS (8)
  - Pneumonia [Unknown]
  - Pneumonitis [Unknown]
  - Pallor [Unknown]
  - Weight decreased [Unknown]
  - Pulmonary mass [Unknown]
  - Ill-defined disorder [Unknown]
  - Anaemia [Unknown]
  - Off label use [Unknown]
